FAERS Safety Report 20691258 (Version 2)
Quarter: 2022Q2

REPORT INFORMATION
  Report Type: Spontaneous
  Country: US (occurrence: US)
  Receive Date: 20220408
  Receipt Date: 20220422
  Transmission Date: 20220721
  Serious: No
  Sender: FDA-Public Use
  Company Number: US-BIOMARINAP-US-2022-142547

PATIENT
  Age: 8 Month
  Sex: Male
  Weight: 10.476 kg

DRUGS (1)
  1. KUVAN [Suspect]
     Active Substance: SAPROPTERIN DIHYDROCHLORIDE
     Indication: Phenylketonuria
     Dosage: 200 MILLIGRAM, QD
     Route: 048
     Dates: start: 20220404

REACTIONS (7)
  - Decreased appetite [Recovered/Resolved]
  - Sleep disorder [Recovered/Resolved]
  - Rhinorrhoea [Unknown]
  - Diarrhoea [Unknown]
  - Cough [Recovered/Resolved]
  - Vomiting [Recovered/Resolved]
  - Oropharyngeal pain [Unknown]

NARRATIVE: CASE EVENT DATE: 20220405
